FAERS Safety Report 14306802 (Version 1)
Quarter: 2017Q4

REPORT INFORMATION
  Report Type: Spontaneous
  Country: CN (occurrence: CN)
  Receive Date: 20171220
  Receipt Date: 20171220
  Transmission Date: 20180321
  Serious: Yes (Death)
  Sender: FDA-Public Use
  Company Number: CN-ROCHE-2018026

PATIENT
  Age: 65 Year
  Sex: Male

DRUGS (11)
  1. GIMERACIL [Concomitant]
     Active Substance: GIMERACIL
     Indication: RECTAL CANCER
     Dosage: DAY1-14
     Route: 048
     Dates: start: 20170712
  2. OTERACIL [Concomitant]
     Active Substance: OTERACIL
     Indication: RECTAL CANCER
     Dosage: DAY1-14
     Route: 048
     Dates: start: 20170712
  3. OXALIPLATIN. [Concomitant]
     Active Substance: OXALIPLATIN
     Indication: RECTAL CANCER
     Dosage: DAY1
     Route: 065
     Dates: start: 20170921
  4. TEGAFUR [Concomitant]
     Active Substance: TEGAFUR
     Dosage: DAY1-6
     Route: 048
     Dates: start: 20170829, end: 20170903
  5. AVASTIN [Suspect]
     Active Substance: BEVACIZUMAB
     Indication: RECTAL CANCER
     Route: 041
     Dates: start: 20170921
  6. TEGAFUR [Concomitant]
     Active Substance: TEGAFUR
     Indication: RECTAL CANCER
     Dosage: DAY1-14
     Route: 048
     Dates: start: 20170712
  7. OTERACIL [Concomitant]
     Active Substance: OTERACIL
     Dosage: DAY1-6
     Route: 048
     Dates: start: 20170829, end: 20170903
  8. IRINOTECAN [Concomitant]
     Active Substance: IRINOTECAN
     Indication: RECTAL CANCER
  9. OXALIPLATIN. [Concomitant]
     Active Substance: OXALIPLATIN
     Dosage: DAY1
     Route: 065
     Dates: start: 20170829, end: 20170829
  10. CAPECITABINE. [Concomitant]
     Active Substance: CAPECITABINE
     Indication: RECTAL CANCER
     Dosage: DAY1-14
     Route: 065
     Dates: start: 20170921
  11. GIMERACIL [Concomitant]
     Active Substance: GIMERACIL
     Dosage: DAY1-6
     Route: 048
     Dates: start: 20170829, end: 20170903

REACTIONS (1)
  - Large intestine perforation [Fatal]

NARRATIVE: CASE EVENT DATE: 201710
